FAERS Safety Report 24006133 (Version 1)
Quarter: 2024Q2

REPORT INFORMATION
  Report Type: Spontaneous
  Country: US (occurrence: US)
  Receive Date: 20240624
  Receipt Date: 20240624
  Transmission Date: 20240715
  Serious: No
  Sender: FDA-Public Use
  Company Number: US-DRL-USA-LIT/USA/24/0008878

PATIENT
  Age: 48 Year
  Sex: Female

DRUGS (6)
  1. TIZANIDINE [Suspect]
     Active Substance: TIZANIDINE
     Indication: Lymphoedema
  2. TIZANIDINE [Suspect]
     Active Substance: TIZANIDINE
     Indication: Neuralgia
  3. TIZANIDINE [Suspect]
     Active Substance: TIZANIDINE
     Indication: Myofascial pain syndrome
  4. GABAPENTIN [Concomitant]
     Active Substance: GABAPENTIN
     Indication: Lymphoedema
  5. DICLOFENAC [Concomitant]
     Active Substance: DICLOFENAC
     Indication: Lymphoedema
  6. BUPIVACAINE [Concomitant]
     Active Substance: BUPIVACAINE\BUPIVACAINE HYDROCHLORIDE
     Indication: Lymphoedema

REACTIONS (1)
  - Drug ineffective for unapproved indication [Unknown]
